FAERS Safety Report 6647685-7 (Version None)
Quarter: 2010Q1

REPORT INFORMATION
  Report Type: 
  Country: None (occurrence: None)
  Receive Date: 20100323
  Receipt Date: 20100323
  Transmission Date: 20100710
  Serious: No
  Sender: FDA-Public Use
  Company Number: None

PATIENT
  Sex: Male
  Weight: 74.8435 kg

DRUGS (2)
  1. PRAVASTATIN SODIUM [Suspect]
     Dosage: 20 MG 1 ORAL
     Route: 048
     Dates: start: 20091115, end: 20100312
  2. LIPITOR [Suspect]
     Dosage: 20 MG 1 ORAL
     Route: 048
     Dates: start: 20090401

REACTIONS (3)
  - ABDOMINAL PAIN UPPER [None]
  - MUSCLE SPASMS [None]
  - MYALGIA [None]
